FAERS Safety Report 5108061-1 (Version None)
Quarter: 2006Q3

REPORT INFORMATION
  Report Type: 
  Country: None (occurrence: None)
  Receive Date: 20060915
  Receipt Date: 20060901
  Transmission Date: 20061208
  Serious: Yes (Hospitalization)
  Sender: FDA-Public Use
  Company Number: US018238

PATIENT
  Age: 77 Year
  Sex: Male
  Weight: 86.1834 kg

DRUGS (2)
  1. PROVIGIL [Suspect]
     Indication: NARCOLEPSY
     Dosage: 200 TO 400 MG
     Dates: start: 20010101
  2. LASIX [Concomitant]

REACTIONS (6)
  - ALCOHOL USE [None]
  - CARDIAC FAILURE [None]
  - DEHYDRATION [None]
  - HYPOTENSION [None]
  - LOGORRHOEA [None]
  - MALAISE [None]
